FAERS Safety Report 20537226 (Version 2)
Quarter: 2022Q2

REPORT INFORMATION
  Report Type: Spontaneous
  Country: NL (occurrence: NL)
  Receive Date: 20220302
  Receipt Date: 20220420
  Transmission Date: 20220721
  Serious: Yes (Death, Other)
  Sender: FDA-Public Use
  Company Number: NL-BAYER-2022A030300

PATIENT
  Age: 80 Year
  Sex: Male

DRUGS (2)
  1. ULTRAVIST [Suspect]
     Active Substance: IOPROMIDE
     Indication: Computerised tomogram abdomen
     Dosage: 100 DF, ONCE
     Route: 042
     Dates: start: 20220226, end: 20220226
  2. ULTRAVIST [Suspect]
     Active Substance: IOPROMIDE
     Indication: Computerised tomogram pelvis

REACTIONS (6)
  - Anaphylactic shock [Fatal]
  - Sneezing [Fatal]
  - Urticaria [Fatal]
  - Pruritus [Fatal]
  - Swelling [Fatal]
  - Cyanosis [Fatal]

NARRATIVE: CASE EVENT DATE: 20220226
